FAERS Safety Report 25911363 (Version 3)
Quarter: 2025Q4

REPORT INFORMATION
  Report Type: Report from Study
  Country: US (occurrence: US)
  Receive Date: 20251013
  Receipt Date: 20251017
  Transmission Date: 20260117
  Serious: Yes (Death)
  Sender: ROCHE
  Company Number: US-ROCHE-10000047882

PATIENT
  Age: 75 Year
  Sex: Female

DRUGS (12)
  1. AVASTIN [Suspect]
     Active Substance: BEVACIZUMAB
     Indication: Endometrial cancer
     Dosage: INFUSE 10MG/KG (513MG)
     Route: 042
     Dates: start: 20240319, end: 20250109
  2. AVASTIN [Suspect]
     Active Substance: BEVACIZUMAB
     Dosage: INFUSE 10MG/KG (513MG)
     Route: 042
  3. HYDROCHLOROTHIAZIDE [Concomitant]
     Active Substance: HYDROCHLOROTHIAZIDE
  4. XALATAN [Concomitant]
     Active Substance: LATANOPROST
  5. SYNTHROID [Concomitant]
     Active Substance: LEVOTHYROXINE SODIUM
  6. LINZESS [Concomitant]
     Active Substance: LINACLOTIDE
  7. METFORMIN [Concomitant]
     Active Substance: METFORMIN HYDROCHLORIDE
  8. MIRTAZAPINE [Concomitant]
     Active Substance: MIRTAZAPINE
  9. NIFEDIPINE [Concomitant]
     Active Substance: NIFEDIPINE
  10. OXYCODONE [Concomitant]
     Active Substance: OXYCODONE
  11. COMPAZINE [Concomitant]
     Active Substance: PROCHLORPERAZINE MALEATE
  12. ZOFRAN [Concomitant]
     Active Substance: ONDANSETRON HYDROCHLORIDE

REACTIONS (4)
  - Off label use [Unknown]
  - Neoplasm malignant [Fatal]
  - Hypertension [Unknown]
  - Chronic kidney disease [Unknown]
